FAERS Safety Report 23219114 (Version 1)
Quarter: 2023Q4

REPORT INFORMATION
  Report Type: Other
  Country: PT (occurrence: PT)
  Receive Date: 20231122
  Receipt Date: 20231122
  Transmission Date: 20240110
  Serious: Yes (Death, Other)
  Sender: FDA-Public Use
  Company Number: PT-GLAXOSMITHKLINE-PT2022017931

PATIENT

DRUGS (94)
  1. DUTASTERIDE [Suspect]
     Active Substance: DUTASTERIDE
  2. LEVOCETIRIZINE HYDROCHLORIDE [Suspect]
     Active Substance: LEVOCETIRIZINE HYDROCHLORIDE
     Dosage: 5 MG
     Route: 065
  3. DONEPEZIL [Suspect]
     Active Substance: DONEPEZIL
     Route: 048
  4. AGOMELATINE [Suspect]
     Active Substance: AGOMELATINE
  5. GINKGO [Suspect]
     Active Substance: GINKGO
  6. NITROGLYCERIN [Suspect]
     Active Substance: NITROGLYCERIN
     Route: 054
  7. PRAVASTATIN [Suspect]
     Active Substance: PRAVASTATIN
  8. ACETAMINOPHEN [Suspect]
     Active Substance: ACETAMINOPHEN
  9. ALISKIREN [Suspect]
     Active Substance: ALISKIREN
  10. HYDROCHLOROTHIAZIDE [Suspect]
     Active Substance: HYDROCHLOROTHIAZIDE
  11. CELECOXIB [Suspect]
     Active Substance: CELECOXIB
     Dosage: 100 MG
  12. DOMPERIDONE MALEATE [Suspect]
     Active Substance: DOMPERIDONE MALEATE
  13. SOFOSBUVIR [Suspect]
     Active Substance: SOFOSBUVIR
  14. ZOLEDRONIC ACID [Suspect]
     Active Substance: ZOLEDRONIC ACID
  15. TRAMADOL [Suspect]
     Active Substance: TRAMADOL\TRAMADOL HYDROCHLORIDE
  16. BISOPROLOL [Suspect]
     Active Substance: BISOPROLOL\BISOPROLOL FUMARATE
     Dosage: 2.5 MG
  17. PROPRANOLOL [Suspect]
     Active Substance: PROPRANOLOL HYDROCHLORIDE
  18. IMATINIB [Suspect]
     Active Substance: IMATINIB
  19. VERAPAMIL [Suspect]
     Active Substance: VERAPAMIL HYDROCHLORIDE
     Dosage: 120 MG
  20. GLUCOSAMINE [Suspect]
     Active Substance: GLUCOSAMINE
     Dosage: 1500 MG
     Route: 048
  21. CODEINE [Suspect]
     Active Substance: CODEINE
  22. ESOMEPRAZOLE [Suspect]
     Active Substance: ESOMEPRAZOLE
  23. MIRTAZAPINE [Suspect]
     Active Substance: MIRTAZAPINE
     Route: 048
  24. ESCHERICHIA COLI [Suspect]
     Active Substance: ESCHERICHIA COLI
  25. VENLAFAXINE HYDROCHLORIDE [Suspect]
     Active Substance: VENLAFAXINE HYDROCHLORIDE
  26. LEDIPASVIR [Suspect]
     Active Substance: LEDIPASVIR
  27. SERTRALINE HYDROCHLORIDE [Suspect]
     Active Substance: SERTRALINE HYDROCHLORIDE
  28. TOCILIZUMAB [Suspect]
     Active Substance: TOCILIZUMAB
  29. ADALIMUMAB [Suspect]
     Active Substance: ADALIMUMAB\ISOPROPYL ALCOHOL
  30. ESCITALOPRAM [Suspect]
     Active Substance: ESCITALOPRAM OXALATE
     Route: 048
  31. INDOMETHACIN [Suspect]
     Active Substance: INDOMETHACIN
     Dosage: 100 MG
     Route: 047
  32. EZETIMIBE [Suspect]
     Active Substance: EZETIMIBE
     Route: 048
  33. ATORVASTATIN [Suspect]
     Active Substance: ATORVASTATIN
     Dosage: 100 MG
  34. RIBAVIRIN [Suspect]
     Active Substance: RIBAVIRIN
  35. NILOTINIB [Suspect]
     Active Substance: NILOTINIB
  36. IBANDRONIC ACID [Suspect]
     Active Substance: IBANDRONIC ACID
  37. ETANERCEPT [Suspect]
     Active Substance: ETANERCEPT
     Indication: Blood pressure measurement
  38. MYCOPHENOLIC ACID [Suspect]
     Active Substance: MYCOPHENOLIC ACID
  39. ASPIRIN [Suspect]
     Active Substance: ASPIRIN
     Dosage: 10 MG
  40. ASPIRIN [Suspect]
     Active Substance: ASPIRIN
     Dosage: 5 MG
  41. NORFLOXACIN [Suspect]
     Active Substance: NORFLOXACIN
  42. ALENDRONIC ACID [Suspect]
     Active Substance: ALENDRONIC ACID
  43. ENOXAPARIN [Suspect]
     Active Substance: ENOXAPARIN
  44. DILTIAZEM [Suspect]
     Active Substance: DILTIAZEM
     Dosage: 120 MG
  45. HYDROMORPHONE HYDROCHLORIDE [Suspect]
     Active Substance: HYDROMORPHONE HYDROCHLORIDE
     Route: 048
  46. DOCETAXEL [Suspect]
     Active Substance: DOCETAXEL\DOCETAXEL ANHYDROUS
  47. DOCETAXEL [Suspect]
     Active Substance: DOCETAXEL\DOCETAXEL ANHYDROUS
     Dosage: 100 MG
  48. ANASTROZOLE [Suspect]
     Active Substance: ANASTROZOLE
  49. ACECLOFENAC [Suspect]
     Active Substance: ACECLOFENAC
     Dosage: 100 MG
  50. SODIUM PICOSULFATE [Suspect]
     Active Substance: SODIUM PICOSULFATE
     Route: 062
  51. SODIUM PICOSULFATE [Suspect]
     Active Substance: SODIUM PICOSULFATE
     Dosage: 35G
     Route: 062
  52. CILAZAPRIL ANHYDROUS [Suspect]
     Active Substance: CILAZAPRIL ANHYDROUS
  53. SIMVASTATIN [Suspect]
     Active Substance: SIMVASTATIN
  54. SIMVASTATIN [Suspect]
     Active Substance: SIMVASTATIN
     Route: 048
  55. NIMESULIDE [Suspect]
     Active Substance: NIMESULIDE
     Dosage: 100 MG
  56. PITAVASTATIN [Suspect]
     Active Substance: PITAVASTATIN
  57. FENOFIBRATE [Suspect]
     Active Substance: FENOFIBRATE
  58. FENOFIBRATE [Suspect]
     Active Substance: FENOFIBRATE
     Dosage: 100 MG
  59. LETROZOLE [Suspect]
     Active Substance: LETROZOLE
  60. EXEMESTANE [Suspect]
     Active Substance: EXEMESTANE
  61. EXEMESTANE [Suspect]
     Active Substance: EXEMESTANE
     Dosage: 35 G
  62. TELMISARTAN [Suspect]
     Active Substance: TELMISARTAN
  63. CHOLECALCIFEROL [Suspect]
     Active Substance: CHOLECALCIFEROL
  64. CHOLECALCIFEROL [Suspect]
     Active Substance: CHOLECALCIFEROL
     Dosage: 50 MG
  65. CHOLECALCIFEROL [Suspect]
     Active Substance: CHOLECALCIFEROL
     Dosage: 22400 IU
  66. FLUVASTATIN [Suspect]
     Active Substance: FLUVASTATIN SODIUM
  67. FLUOXETINE [Suspect]
     Active Substance: FLUOXETINE HYDROCHLORIDE
  68. RABIES IMMUNE GLOBULIN (HUMAN) [Suspect]
     Active Substance: RABIES IMMUNE GLOBULIN (HUMAN)
  69. IODINE [Suspect]
     Active Substance: IODINE
  70. HUMAN IMMUNOGLOBULIN G [Suspect]
     Active Substance: HUMAN IMMUNOGLOBULIN G
     Dosage: 50 MG
  71. TAMSULOSIN [Suspect]
     Active Substance: TAMSULOSIN
     Route: 062
  72. CODEINE PHOSPHATE [Suspect]
     Active Substance: CODEINE PHOSPHATE
  73. PENTAZOCINE [Suspect]
     Active Substance: PENTAZOCINE
     Dosage: 100 MG
  74. PENTAZOCINE [Suspect]
     Active Substance: PENTAZOCINE
  75. CODEINE SULFATE [Suspect]
     Active Substance: CODEINE SULFATE
  76. ENOXAPARIN SODIUM [Suspect]
     Active Substance: ENOXAPARIN SODIUM
  77. CODEINE [Suspect]
     Active Substance: CODEINE
  78. ESCITALOPRAM OXALATE [Suspect]
     Active Substance: ESCITALOPRAM OXALATE
     Route: 048
  79. ESCITALOPRAM OXALATE [Suspect]
     Active Substance: ESCITALOPRAM OXALATE
     Dosage: 5 MG
     Route: 048
  80. ALENDRONATE SODIUM [Suspect]
     Active Substance: ALENDRONATE SODIUM
  81. BISOPROLOL FUMARATE [Suspect]
     Active Substance: BISOPROLOL FUMARATE
  82. BISOPROLOL FUMARATE [Suspect]
     Active Substance: BISOPROLOL FUMARATE
     Dosage: 2.5 MG
  83. VORTIOXETINE [Suspect]
     Active Substance: VORTIOXETINE
  84. POTASSIUM IODIDE [Suspect]
     Active Substance: POTASSIUM IODIDE
  85. PREGABALIN [Suspect]
     Active Substance: PREGABALIN
     Dosage: 50 MG
  86. PREGABALIN [Suspect]
     Active Substance: PREGABALIN
     Dosage: 120 MG
  87. BUPRENORPHINE [Suspect]
     Active Substance: BUPRENORPHINE
     Dosage: 35G
     Route: 062
  88. BRINZOLAMIDE [Suspect]
     Active Substance: BRINZOLAMIDE
     Dosage: 120 MG
     Route: 047
  89. PENTOXIFYLLINE [Suspect]
     Active Substance: PENTOXIFYLLINE
     Dosage: 100 MG
  90. PENTOXIFYLLINE [Suspect]
     Active Substance: PENTOXIFYLLINE
     Dosage: 400 MG
  91. NORFLOXACIN [Suspect]
     Active Substance: NORFLOXACIN
  92. CISPLATIN [Suspect]
     Active Substance: CISPLATIN
  93. GEMCITABINE [Suspect]
     Active Substance: GEMCITABINE
  94. MYCOPHENOLATE MOFETIL [Suspect]
     Active Substance: MYCOPHENOLATE MOFETIL

REACTIONS (45)
  - Sepsis [Fatal]
  - Headache [Fatal]
  - Cardio-respiratory arrest [Fatal]
  - Haemorrhagic stroke [Fatal]
  - Altered state of consciousness [Fatal]
  - Malaise [Fatal]
  - Cough [Fatal]
  - Haematuria [Fatal]
  - Fall [Fatal]
  - Vision blurred [Fatal]
  - Urinary tract disorder [Fatal]
  - Tachycardia [Fatal]
  - Diarrhoea [Fatal]
  - Dizziness [Fatal]
  - Syncope [Fatal]
  - Photophobia [Fatal]
  - Dyspnoea [Fatal]
  - Myalgia [Fatal]
  - Presyncope [Fatal]
  - Blindness [Fatal]
  - Chills [Fatal]
  - Fatigue [Fatal]
  - Abdominal pain [Fatal]
  - Vomiting [Fatal]
  - Decreased appetite [Fatal]
  - Ascites [Fatal]
  - Somnolence [Fatal]
  - Somnolence [Fatal]
  - Blood pressure increased [Fatal]
  - Pruritus [Fatal]
  - Diplopia [Fatal]
  - Haematemesis [Fatal]
  - Coma [Fatal]
  - Ocular discomfort [Fatal]
  - Arthralgia [Fatal]
  - Eye pain [Fatal]
  - Head discomfort [Fatal]
  - Insomnia [Fatal]
  - Tinnitus [Fatal]
  - Amaurosis fugax [Fatal]
  - Pyrexia [Fatal]
  - Abdominal pain upper [Fatal]
  - Generalised oedema [Fatal]
  - Asthenia [Fatal]
  - Nausea [Fatal]
